FAERS Safety Report 6830892-8 (Version None)
Quarter: 2010Q3

REPORT INFORMATION
  Report Type: 
  Country: None (occurrence: None)
  Receive Date: 20100712
  Receipt Date: 20100701
  Transmission Date: 20110219
  Serious: Yes (Death, Hospitalization)
  Sender: FDA-Public Use
  Company Number: JP-BAYER-200912346BYL

PATIENT
  Age: 68 Year
  Sex: Male
  Weight: 57 kg

DRUGS (23)
  1. NEXAVAR [Suspect]
     Indication: HEPATIC NEOPLASM MALIGNANT
     Dosage: TOTAL DAILY DOSE: 800 MG  UNIT DOSE: 200 MG
     Route: 048
     Dates: start: 20090629, end: 20090702
  2. NEXAVAR [Suspect]
     Dosage: TOTAL DAILY DOSE: 400 MG  UNIT DOSE: 200 MG
     Route: 048
     Dates: start: 20090721, end: 20090807
  3. RACOL [Concomitant]
     Dosage: UNIT DOSE: 200 ML
     Route: 048
     Dates: start: 20090807, end: 20090828
  4. MEPTIN [Concomitant]
     Indication: ASTHMA
     Dosage: UNIT DOSE: 50 ?G
     Route: 048
     Dates: start: 20090807, end: 20090828
  5. TAKEPRON [Concomitant]
     Indication: GASTRIC ULCER
     Dosage: UNIT DOSE: 15 MG
     Route: 048
     Dates: start: 20090821, end: 20090828
  6. AMINOLEBAN [Concomitant]
     Route: 042
     Dates: start: 20090828, end: 20090831
  7. SOLU-CORTEF [Concomitant]
     Indication: PYREXIA
     Route: 042
     Dates: start: 20090703, end: 20090705
  8. SOLU-CORTEF [Concomitant]
     Route: 042
     Dates: start: 20090901, end: 20090905
  9. WYSTAL [Concomitant]
     Route: 042
     Dates: start: 20090828, end: 20090903
  10. FAMOSTAGINE [Concomitant]
     Route: 042
     Dates: start: 20090828, end: 20090903
  11. MORPHINE HYDROCHLORIDE [Concomitant]
     Route: 042
     Dates: start: 20090909, end: 20090913
  12. FAMOSTAGINE-D [Concomitant]
     Dosage: UNIT DOSE: 20 MG
     Route: 048
     Dates: start: 20090629, end: 20090821
  13. URSO 250 [Concomitant]
     Dosage: UNIT DOSE: 100 MG
     Route: 048
     Dates: start: 20090622, end: 20090821
  14. JUZEN-TAIHO-TO [Concomitant]
     Route: 048
     Dates: start: 20090622, end: 20090723
  15. LIVACT [Concomitant]
     Route: 048
     Dates: start: 20090704, end: 20090821
  16. LASIX [Concomitant]
     Dosage: UNIT DOSE: 20 MG
     Route: 048
     Dates: start: 20090713, end: 20090821
  17. MACACY [Concomitant]
     Dosage: UNIT DOSE: 25 MG
     Route: 048
     Dates: start: 20090713, end: 20090821
  18. AMLODIN OD [Concomitant]
     Dosage: UNIT DOSE: 5 MG
     Route: 048
     Dates: start: 20090717, end: 20090821
  19. TRICOR [Concomitant]
     Route: 048
     Dates: start: 20090717, end: 20090821
  20. DOXAZOSIN MESYLATE [Concomitant]
     Dosage: UNIT DOSE: 2 MG
     Route: 048
     Dates: start: 20090717, end: 20090821
  21. LASIX [Concomitant]
     Dosage: UNIT DOSE: 20 MG
     Route: 042
     Dates: start: 20090715, end: 20090718
  22. SOLDACTONE [Concomitant]
     Dosage: UNIT DOSE: 100 MG
     Route: 042
     Dates: start: 20090715, end: 20090718
  23. ALBUMIN (HUMAN) [Concomitant]
     Dosage: UNIT DOSE: 25 %
     Route: 042
     Dates: start: 20090715, end: 20090717

REACTIONS (8)
  - ABDOMINAL PAIN [None]
  - ANAEMIA [None]
  - BLOOD LACTATE DEHYDROGENASE INCREASED [None]
  - DECREASED APPETITE [None]
  - FATIGUE [None]
  - HEPATIC NEOPLASM MALIGNANT [None]
  - LIVER CARCINOMA RUPTURED [None]
  - PYREXIA [None]
